FAERS Safety Report 6907054-9 (Version None)
Quarter: 2010Q3

REPORT INFORMATION
  Report Type: 
  Country: None (occurrence: None)
  Receive Date: 20100804
  Receipt Date: 20080722
  Transmission Date: 20110219
  Serious: Yes (Hospitalization)
  Sender: FDA-Public Use
  Company Number: FR-PFIZER INC-2008035235

PATIENT
  Sex: Male
  Weight: 76 kg

DRUGS (8)
  1. MARAVIROC [Suspect]
     Indication: HIV INFECTION
     Route: 048
     Dates: start: 20080320
  2. RALTEGRAVIR [Suspect]
     Route: 048
     Dates: start: 20080320
  3. DARUNAVIR [Suspect]
     Route: 048
     Dates: start: 20080320
  4. RITONAVIR [Suspect]
     Route: 042
     Dates: start: 20080320
  5. ZIDOVUDINE [Concomitant]
     Route: 048
     Dates: start: 20080320
  6. FOSCARNET [Concomitant]
     Route: 048
     Dates: start: 20080320
  7. ETRAVIRINE [Concomitant]
     Route: 048
     Dates: start: 20080320
  8. ATOVAQUONE [Concomitant]
     Route: 048
     Dates: start: 20040101

REACTIONS (3)
  - BACTERAEMIA [None]
  - DIARRHOEA [None]
  - HYPOKALAEMIA [None]
